FAERS Safety Report 6329584-3 (Version None)
Quarter: 2009Q3

REPORT INFORMATION
  Report Type: 
  Country: None (occurrence: None)
  Receive Date: 20090826
  Receipt Date: 20090604
  Transmission Date: 20100115
  Serious: Yes (Disabling)
  Sender: FDA-Public Use
  Company Number: JP-MERCK-0906USA01654

PATIENT
  Age: 69 Year
  Sex: Male

DRUGS (9)
  1. PEPCID [Suspect]
     Indication: GASTRITIS PROPHYLAXIS
     Route: 048
     Dates: start: 20070215, end: 20070801
  2. DEPAKENE [Suspect]
     Route: 048
     Dates: start: 20021112, end: 20070926
  3. DEPAKENE [Suspect]
     Route: 048
     Dates: start: 20080724, end: 20080813
  4. DEPAKENE [Suspect]
     Route: 048
     Dates: start: 20080814, end: 20081001
  5. DEPAKENE [Suspect]
     Route: 048
     Dates: start: 20070927, end: 20080723
  6. ASPIRIN [Concomitant]
     Route: 065
     Dates: start: 20021112
  7. TIZANIDINE HCL [Concomitant]
     Route: 065
     Dates: start: 20021112
  8. DIOVAN [Concomitant]
     Route: 065
     Dates: start: 20070802, end: 20070926
  9. FAMOTIDINE [Suspect]
     Indication: GASTRITIS PROPHYLAXIS
     Route: 048
     Dates: start: 20070802, end: 20071024

REACTIONS (1)
  - PARKINSONISM [None]
